FAERS Safety Report 22367696 (Version 1)
Quarter: 2023Q2

REPORT INFORMATION
  Report Type: Spontaneous
  Country: US (occurrence: US)
  Receive Date: 20230525
  Receipt Date: 20230525
  Transmission Date: 20230721
  Serious: No
  Sender: FDA-Public Use
  Company Number: US-BRAINTREE LABORATORIES, INC.-2022BTE00315

PATIENT
  Age: 60 Year
  Sex: Male
  Weight: 86.168 kg

DRUGS (1)
  1. NULYTELY [Suspect]
     Active Substance: POLYETHYLENE GLYCOL 3350\POTASSIUM CHLORIDE\SODIUM BICARBONATE\SODIUM CHLORIDE
     Indication: Colonoscopy
     Dosage: UNK, 1X
     Route: 048
     Dates: start: 202103

REACTIONS (2)
  - Rash [Recovered/Resolved]
  - Oral pruritus [Recovered/Resolved]
